FAERS Safety Report 4760936-9 (Version None)
Quarter: 2005Q3

REPORT INFORMATION
  Report Type: 
  Country: None (occurrence: None)
  Receive Date: 20050901
  Receipt Date: 20050826
  Transmission Date: 20060218
  Serious: Yes (Hospitalization)
  Sender: FDA-Public Use
  Company Number: 200511762BWH

PATIENT
  Age: 38 Year
  Sex: Female

DRUGS (3)
  1. DACARBAZINE [Suspect]
     Indication: METASTATIC MALIGNANT MELANOMA
     Dosage: INTRAVENOUS
     Route: 042
  2. GENASENSE [Suspect]
     Indication: METASTATIC MALIGNANT MELANOMA
     Dosage: 2450 MG, ONCE, INTRAVENOUS
     Route: 042
     Dates: start: 20001012
  3. ACETAMINOPHEN [Concomitant]

REACTIONS (8)
  - HAEMATOCRIT DECREASED [None]
  - HAEMATURIA [None]
  - HAEMOGLOBIN DECREASED [None]
  - NAUSEA [None]
  - OVERDOSE [None]
  - PYREXIA [None]
  - THROMBOCYTOPENIA [None]
  - VOMITING [None]
